FAERS Safety Report 4370784-X (Version None)
Quarter: 2004Q2

REPORT INFORMATION
  Report Type: 
  Country: None (occurrence: None)
  Receive Date: 20040601
  Receipt Date: 20040519
  Transmission Date: 20050107
  Serious: Yes (Hospitalization, Disabling)
  Sender: FDA-Public Use
  Company Number: 2004SE02357

PATIENT
  Age: 82 Year
  Sex: Female

DRUGS (12)
  1. OMEPRAZOLE [Suspect]
     Indication: REFLUX OESOPHAGITIS
     Dosage: 20 MG DAILY PO
     Route: 048
     Dates: start: 20020101, end: 20040415
  2. DIOVAN [Suspect]
     Indication: HYPERTENSION
     Dosage: 80 MG DAILY  PO
     Route: 048
     Dates: start: 20030401, end: 20040415
  3. DEPAS [Concomitant]
  4. CARDENALIN [Concomitant]
  5. ONE-ALPHA [Concomitant]
  6. NORVASC [Concomitant]
  7. LIPOVAS ^BANYU^ [Concomitant]
  8. EPADEL [Concomitant]
  9. HALCION [Concomitant]
  10. MARZULENE S [Concomitant]
  11. CEREKINON [Concomitant]
  12. FORSENID [Concomitant]

REACTIONS (7)
  - ANOREXIA [None]
  - HAEMODIALYSIS [None]
  - MALAISE [None]
  - MULTIPLE MYELOMA [None]
  - NASOPHARYNGITIS [None]
  - NEPHRITIS INTERSTITIAL [None]
  - RENAL FAILURE ACUTE [None]
